FAERS Safety Report 4334678-8 (Version None)
Quarter: 2004Q2

REPORT INFORMATION
  Report Type: 
  Country: None (occurrence: None)
  Receive Date: 20040408
  Receipt Date: 20040329
  Transmission Date: 20050107
  Serious: Yes (Hospitalization)
  Sender: FDA-Public Use
  Company Number: FR-BRISTOL-MYERS SQUIBB COMPANY-12546321

PATIENT
  Age: 40 Year
  Sex: Male

DRUGS (3)
  1. VIDEX EC [Suspect]
     Route: 048
     Dates: end: 20030101
  2. ZIAGEN [Suspect]
     Route: 048
     Dates: end: 20030101
  3. VIRACEPT [Concomitant]

REACTIONS (2)
  - HEPATITIS [None]
  - JAUNDICE [None]
